FAERS Safety Report 6983501-1 (Version None)
Quarter: 2010Q3

REPORT INFORMATION
  Report Type: 
  Country: None (occurrence: None)
  Receive Date: 20100914
  Receipt Date: 20080729
  Transmission Date: 20110219
  Serious: No
  Sender: FDA-Public Use
  Company Number: US-WYE-H04860108

PATIENT
  Age: 81 Year
  Sex: Male
  Weight: 76.27 kg

DRUGS (4)
  1. ADVIL LIQUI-GELS [Suspect]
     Indication: GOUT
     Dosage: 3 LIQUI-GELS THREE TIMES DAILY (DOSING RECOMMENDED BY MD)
     Route: 048
     Dates: start: 20080613, end: 20080615
  2. AVODART [Concomitant]
  3. FLOMAX [Concomitant]
  4. BENICAR [Concomitant]

REACTIONS (6)
  - ASTHENIA [None]
  - CHILLS [None]
  - DECREASED APPETITE [None]
  - DIARRHOEA [None]
  - HEADACHE [None]
  - PYREXIA [None]
